FAERS Safety Report 5212911-8 (Version None)
Quarter: 2007Q1

REPORT INFORMATION
  Report Type: 
  Country: None (occurrence: None)
  Receive Date: 20070118
  Receipt Date: 20070118
  Transmission Date: 20070707
  Serious: No
  Sender: FDA-Public Use
  Company Number: None

PATIENT
  Age: 5 Year
  Sex: Female

DRUGS (1)
  1. NITROUS OXIDE W/ OXYGEN [Suspect]

REACTIONS (3)
  - COMA [None]
  - MEDICATION ERROR [None]
  - RESPIRATORY ARREST [None]
